FAERS Safety Report 11533318 (Version 1)
Quarter: 2015Q3

REPORT INFORMATION
  Report Type: Spontaneous
  Country: US (occurrence: US)
  Receive Date: 20150921
  Receipt Date: 20150921
  Transmission Date: 20151125
  Serious: No
  Sender: FDA-Public Use
  Company Number: US-ALLERGAN-1418926US

PATIENT
  Age: 58 Year
  Sex: Female

DRUGS (1)
  1. LASTACAFT [Suspect]
     Active Substance: ALCAFTADINE
     Indication: GIANT PAPILLARY CONJUNCTIVITIS
     Dosage: 2 GTT, QAM
     Dates: start: 20140822, end: 20140825

REACTIONS (2)
  - Eye irritation [Recovered/Resolved]
  - Fatigue [Recovered/Resolved]

NARRATIVE: CASE EVENT DATE: 20140822
